FAERS Safety Report 13824115 (Version 7)
Quarter: 2019Q3

REPORT INFORMATION
  Report Type: Report from Study
  Country: AU (occurrence: AU)
  Receive Date: 20170802
  Receipt Date: 20190715
  Transmission Date: 20191004
  Serious: Yes (Hospitalization)
  Sender: FDA-Public Use
  Company Number: AU-BIOGEN-2017BI00437644

PATIENT
  Age: 30 Year
  Sex: Female

DRUGS (3)
  1. PLEGRIDY [Suspect]
     Active Substance: PEGINTERFERON BETA-1A
     Indication: MULTIPLE SCLEROSIS
     Route: 058
     Dates: start: 20170525
  2. PLEGRIDY [Suspect]
     Active Substance: PEGINTERFERON BETA-1A
     Route: 058
  3. PLEGRIDY [Suspect]
     Active Substance: PEGINTERFERON BETA-1A
     Route: 058
     Dates: end: 20180917

REACTIONS (10)
  - Paraesthesia [Not Recovered/Not Resolved]
  - Escherichia urinary tract infection [Recovered/Resolved]
  - Inappropriate schedule of product administration [Recovered/Resolved]
  - Escherichia bacteraemia [Unknown]
  - Anxiety [Not Recovered/Not Resolved]
  - Reflux nephropathy [Not Recovered/Not Resolved]
  - Central nervous system lesion [Not Recovered/Not Resolved]
  - Decreased appetite [Unknown]
  - Hypoaesthesia [Not Recovered/Not Resolved]
  - Muscle spasms [Unknown]

NARRATIVE: CASE EVENT DATE: 201706
